FAERS Safety Report 5743074-8 (Version None)
Quarter: 2008Q2

REPORT INFORMATION
  Report Type: 
  Country: None (occurrence: None)
  Receive Date: 20080516
  Receipt Date: 20071016
  Transmission Date: 20081010
  Serious: Yes (Hospitalization)
  Sender: FDA-Public Use
  Company Number: 2007S1000451

PATIENT
  Sex: Female
  Weight: 77.3 kg

DRUGS (10)
  1. CUBICIN [Suspect]
     Indication: STAPHYLOCOCCAL INFECTION
     Dosage: 6 MG/KG;Q24H;IV
     Route: 042
     Dates: start: 20070330, end: 20070403
  2. VANCOMYCIN HCL [Concomitant]
  3. EZETIMIBE [Concomitant]
  4. SIMVASTATIN [Concomitant]
  5. SYNTHROID [Concomitant]
  6. PLAVIX [Concomitant]
  7. ASPIRIN [Concomitant]
  8. ACCUPRIL [Concomitant]
  9. TOPROL-XL [Concomitant]
  10. AMARYL [Concomitant]

REACTIONS (1)
  - NAUSEA [None]
